FAERS Safety Report 7569573-4 (Version None)
Quarter: 2011Q2

REPORT INFORMATION
  Report Type: 
  Country: None (occurrence: None)
  Receive Date: 20110622
  Receipt Date: 20110622
  Transmission Date: 20111010
  Serious: No
  Sender: FDA-Public Use
  Company Number: None

PATIENT
  Age: 39 Year
  Sex: Female
  Weight: 56.246 kg

DRUGS (2)
  1. AVELOX [Suspect]
     Indication: SINUSITIS
     Dosage: 400MG 1 X DAILY
     Dates: start: 20110617, end: 20110618
  2. MOXIFLOXACIN HCI TABLETS [Concomitant]

REACTIONS (10)
  - ARTHRALGIA [None]
  - HYPOAESTHESIA [None]
  - LIMB INJURY [None]
  - PALPITATIONS [None]
  - FEELING ABNORMAL [None]
  - SOMNOLENCE [None]
  - ABASIA [None]
  - PARAESTHESIA [None]
  - BACK PAIN [None]
  - PAIN IN EXTREMITY [None]
